FAERS Safety Report 8604421-2 (Version None)
Quarter: 2012Q3

REPORT INFORMATION
  Report Type: 
  Country: None (occurrence: None)
  Receive Date: 20120820
  Receipt Date: 20120810
  Transmission Date: 20120928
  Serious: Yes (Other)
  Sender: FDA-Public Use
  Company Number: CA-JNJFOC-20120517517

PATIENT
  Sex: Male
  Weight: 99.9 kg

DRUGS (6)
  1. RABEPRAZOLE SODIUM [Concomitant]
     Route: 065
  2. REMICADE [Suspect]
     Route: 042
     Dates: start: 20120703
  3. IMURAN [Concomitant]
     Route: 065
  4. REMICADE [Suspect]
     Indication: ANKYLOSING SPONDYLITIS
     Route: 042
     Dates: start: 20090617
  5. TIAPROFENIC ACID [Concomitant]
     Route: 065
  6. ADVIL [Concomitant]
     Route: 065

REACTIONS (10)
  - PHYSICAL ASSAULT [None]
  - PAIN [None]
  - INFLUENZA [None]
  - MEMORY IMPAIRMENT [None]
  - TREMOR [None]
  - CONCUSSION [None]
  - DIZZINESS [None]
  - HEADACHE [None]
  - THINKING ABNORMAL [None]
  - CHILLS [None]
